FAERS Safety Report 23536840 (Version 2)
Quarter: 2025Q3

REPORT INFORMATION
  Report Type: Report from Study
  Country: US (occurrence: US)
  Receive Date: 20240219
  Receipt Date: 20250804
  Transmission Date: 20251020
  Serious: No
  Sender: AURINIA PHARMACEUTICALS
  Company Number: US-AURINIA PHARMACEUTICALS INC.-AUR-003985

PATIENT
  Sex: Female

DRUGS (1)
  1. LUPKYNIS [Suspect]
     Active Substance: VOCLOSPORIN
     Indication: Lupus nephritis
     Dosage: 23.7 MILLIGRAM, BID
     Route: 048

REACTIONS (5)
  - Blood calcium decreased [Unknown]
  - Parathyroid disorder [Unknown]
  - Product dose omission issue [Unknown]
  - Product packaging difficult to open [Unknown]
  - Product odour abnormal [Unknown]
